FAERS Safety Report 6604394-8 (Version None)
Quarter: 2010Q1

REPORT INFORMATION
  Report Type: 
  Country: None (occurrence: None)
  Receive Date: 20100226
  Receipt Date: 20091012
  Transmission Date: 20100710
  Serious: No
  Sender: FDA-Public Use
  Company Number: A0808287A

PATIENT
  Age: 33 Year
  Sex: Female

DRUGS (2)
  1. LAMICTAL CD [Suspect]
     Indication: BIPOLAR DISORDER
     Dosage: 25MG PER DAY
     Route: 048
     Dates: start: 20090909, end: 20090914
  2. SEROQUEL [Concomitant]

REACTIONS (23)
  - ASTHENIA [None]
  - BACK PAIN [None]
  - BURNING SENSATION [None]
  - CHILLS [None]
  - DIPLOPIA [None]
  - DIZZINESS [None]
  - DRY MOUTH [None]
  - FATIGUE [None]
  - HEADACHE [None]
  - INFLUENZA LIKE ILLNESS [None]
  - NASAL DISCOMFORT [None]
  - NAUSEA [None]
  - NECK PAIN [None]
  - OROPHARYNGEAL PAIN [None]
  - PAIN [None]
  - PERFORMANCE STATUS DECREASED [None]
  - PRURITUS [None]
  - RASH [None]
  - RHINORRHOEA [None]
  - SENSATION OF HEAVINESS [None]
  - URTICARIA [None]
  - VISION BLURRED [None]
  - VISUAL ACUITY REDUCED [None]
